FAERS Safety Report 7852846 (Version 4)
Quarter: 2013Q4

REPORT INFORMATION
  Report Type: Spontaneous
  Country: US (occurrence: US)
  Receive Date: 20110311
  Receipt Date: 20131216
  Transmission Date: 20140711
  Serious: Yes (Other)
  Sender: FDA-Public Use
  Company Number: US-BAYER-2011-020944

PATIENT
  Age: 29 Year
  Sex: Female
  Weight: 81.63 kg

DRUGS (5)
  1. YASMIN [Suspect]
     Indication: CONTRACEPTION
     Dosage: 1 TABLET / DAY
     Route: 048
     Dates: start: 200309, end: 200704
  2. SYNTHROID [Concomitant]
     Dosage: UNK
     Dates: start: 1993
  3. LEVOTHYROXINE [Concomitant]
  4. PRIMACARE [Concomitant]
  5. PROPOXYPHENE HCL AND ACETAMINOPHEN [Concomitant]

REACTIONS (6)
  - Cholecystitis chronic [Unknown]
  - Cholesterosis [Unknown]
  - Cholelithiasis [Unknown]
  - Liver disorder [None]
  - Cholecystectomy [None]
  - Injury [None]
